FAERS Safety Report 6269380-9 (Version None)
Quarter: 2009Q3

REPORT INFORMATION
  Report Type: 
  Country: None (occurrence: None)
  Receive Date: 20090715
  Receipt Date: 20090709
  Transmission Date: 20100115
  Serious: Yes (Hospitalization)
  Sender: FDA-Public Use
  Company Number: JP-BAXTER-2009BH011423

PATIENT
  Age: 50 Year
  Sex: Female

DRUGS (3)
  1. HOLOXAN BAXTER [Suspect]
     Indication: UTERINE CANCER
     Route: 041
  2. RANDA [Suspect]
     Indication: UTERINE CANCER
     Route: 041
  3. FARMORUBICIN [Suspect]
     Indication: UTERINE CANCER
     Route: 041

REACTIONS (1)
  - INTERSTITIAL LUNG DISEASE [None]
